FAERS Safety Report 8197574-4 (Version None)
Quarter: 2012Q1

REPORT INFORMATION
  Report Type: 
  Country: None (occurrence: None)
  Receive Date: 20120309
  Receipt Date: 20120228
  Transmission Date: 20120608
  Serious: Yes (Hospitalization, Other)
  Sender: FDA-Public Use
  Company Number: BR-ROCHE-1044910

PATIENT
  Sex: Male

DRUGS (3)
  1. ALENIA (BRAZIL) [Concomitant]
     Indication: ASTHMA
     Dosage: 12/400 MCG, 2 INHALATIONS DAILY
  2. XOLAIR [Suspect]
     Indication: PRODUCT USED FOR UNKNOWN INDICATION
  3. OMEPRAZOLE [Concomitant]

REACTIONS (1)
  - ASTHMA [None]
